FAERS Safety Report 7361008-X (Version None)
Quarter: 2011Q1

REPORT INFORMATION
  Report Type: 
  Country: None (occurrence: None)
  Receive Date: 20110315
  Receipt Date: 20110315
  Transmission Date: 20110831
  Serious: Yes (Other)
  Sender: FDA-Public Use
  Company Number: None

PATIENT
  Sex: Female
  Weight: 82.5547 kg

DRUGS (1)
  1. PREDNISONE + ALL RELATED STEROIDS [Suspect]
     Indication: ASTHMA
     Dosage: ANY P.O.  I.V.
     Route: 048
     Dates: start: 20040201, end: 20110101

REACTIONS (12)
  - TYPE 2 DIABETES MELLITUS [None]
  - ABDOMINAL PAIN UPPER [None]
  - ARTHRALGIA [None]
  - BONE PAIN [None]
  - THYROID DISORDER [None]
  - CATARACT [None]
  - VOMITING [None]
  - HEPATIC FUNCTION ABNORMAL [None]
  - DIARRHOEA [None]
  - HEADACHE [None]
  - MYALGIA [None]
  - RENAL IMPAIRMENT [None]
